FAERS Safety Report 12819469 (Version 1)
Quarter: 2016Q4

REPORT INFORMATION
  Report Type: Report from Study
  Country: US (occurrence: US)
  Receive Date: 20161006
  Receipt Date: 20161006
  Transmission Date: 20170207
  Serious: No
  Sender: FDA-Public Use
  Company Number: US-AMGEN-USASL2016005198

PATIENT
  Age: 72 Year
  Sex: Female

DRUGS (3)
  1. PROLIA [Suspect]
     Active Substance: DENOSUMAB
     Indication: OSTEOPOROSIS POSTMENOPAUSAL
     Dosage: UNK
     Route: 065
     Dates: start: 2014
  2. VITAMIN D                          /00107901/ [Suspect]
     Active Substance: ERGOCALCIFEROL
     Indication: PRODUCT USED FOR UNKNOWN INDICATION
     Route: 065
  3. CALCIUM [Suspect]
     Active Substance: CALCIUM
     Indication: PRODUCT USED FOR UNKNOWN INDICATION
     Dosage: 1200 MG, UNK
     Route: 065

REACTIONS (12)
  - Adrenal adenoma [Unknown]
  - Peripheral swelling [Unknown]
  - Arteriosclerosis [Unknown]
  - Back pain [Unknown]
  - Hepatic cyst [Unknown]
  - Pruritus [Not Recovered/Not Resolved]
  - Stomatitis [Unknown]
  - Obstructive defaecation [Not Recovered/Not Resolved]
  - Oral mucosal blistering [Unknown]
  - Exostosis [Unknown]
  - Renal cyst [Unknown]
  - Aortic calcification [Unknown]
